FAERS Safety Report 15752292 (Version 2)
Quarter: 2019Q1

REPORT INFORMATION
  Report Type: Report from Study
  Country: US (occurrence: US)
  Receive Date: 20181221
  Receipt Date: 20190123
  Transmission Date: 20190417
  Serious: Yes (Hospitalization, Other)
  Sender: FDA-Public Use
  Company Number: US-ADAMAS PHARMA, LLC-2018ADA02846

PATIENT
  Age: 74 Year
  Sex: Male

DRUGS (4)
  1. GOCOVRI [Suspect]
     Active Substance: AMANTADINE
     Indication: DYSKINESIA
     Dosage: 137 MG, 1X/DAY (FOR 1-2 WEEKS)
     Route: 048
     Dates: start: 201809, end: 201810
  2. GOCOVRI [Suspect]
     Active Substance: AMANTADINE
     Dosage: 274 MG, 1X/DAY AT NIGHT
     Route: 048
     Dates: start: 201810, end: 20181018
  3. UNSPECIFIED LEVODOPA BASED THERAPY [Concomitant]
  4. DEEP BRAIN STIMULATION [Concomitant]

REACTIONS (8)
  - Mental status changes [Recovered/Resolved]
  - Ataxia [Recovered/Resolved]
  - Physical deconditioning [Unknown]
  - Hallucination, visual [Recovered/Resolved]
  - Toxicity to various agents [Recovered/Resolved]
  - Myoclonus [Recovered/Resolved]
  - Dizziness [Recovered/Resolved]
  - Fall [Recovered/Resolved]

NARRATIVE: CASE EVENT DATE: 201810
